FAERS Safety Report 7091035-1 (Version None)
Quarter: 2010Q4

REPORT INFORMATION
  Report Type: 
  Country: None (occurrence: None)
  Receive Date: 20101109
  Receipt Date: 20101103
  Transmission Date: 20110411
  Serious: Yes (Death, Other)
  Sender: FDA-Public Use
  Company Number: DE-CELGENEUS-062-50794-10101408

PATIENT
  Age: 82 Year
  Sex: Male

DRUGS (1)
  1. VIDAZA [Suspect]
     Route: 048
     Dates: end: 20070602

REACTIONS (6)
  - ANGINA PECTORIS [None]
  - DECREASED APPETITE [None]
  - FATIGUE [None]
  - GENERAL PHYSICAL CONDITION ABNORMAL [None]
  - INFECTION [None]
  - MYELODYSPLASTIC SYNDROME [None]
